FAERS Safety Report 9357497 (Version 1)
Quarter: 2013Q2

REPORT INFORMATION
  Report Type: Spontaneous
  Country: US (occurrence: US)
  Receive Date: 20130620
  Receipt Date: 20130620
  Transmission Date: 20140414
  Serious: Yes (Other)
  Sender: FDA-Public Use
  Company Number: PHEH2013US013220

PATIENT
  Sex: Male

DRUGS (1)
  1. EXELON PATCH [Suspect]
     Dosage: 4.6 MG, DAILY
     Route: 062

REACTIONS (1)
  - Drug administration error [Unknown]
